FAERS Safety Report 17871192 (Version 4)
Quarter: 2020Q3

REPORT INFORMATION
  Report Type: Spontaneous
  Country: JP (occurrence: JP)
  Receive Date: 20200608
  Receipt Date: 20200918
  Transmission Date: 20201103
  Serious: Yes (Hospitalization)
  Sender: FDA-Public Use
  Company Number: JP-DSJP-DSJ-2020-114848

PATIENT
  Age: 89 Year
  Sex: Male

DRUGS (1)
  1. OLMESARTAN OD TABLETS ?DSEP? [Suspect]
     Active Substance: OLMESARTAN MEDOXOMIL
     Indication: HYPERTENSION
     Dosage: 20 MG, QD
     Route: 048
     Dates: start: 20191125, end: 20200527

REACTIONS (2)
  - Interstitial lung disease [Recovered/Resolved]
  - Thrombosis [Unknown]
